FAERS Safety Report 6371240-X (Version None)
Quarter: 2009Q3

REPORT INFORMATION
  Report Type: 
  Country: None (occurrence: None)
  Receive Date: 20090923
  Receipt Date: 20071210
  Transmission Date: 20100115
  Serious: No
  Sender: FDA-Public Use
  Company Number: US-ASTRAZENECA-2007UW00736

PATIENT
  Age: 20708 Day
  Sex: Male
  Weight: 102.7 kg

DRUGS (33)
  1. SEROQUEL [Suspect]
     Indication: DEPRESSION
     Route: 048
     Dates: start: 20050601, end: 20060501
  2. SEROQUEL [Suspect]
     Dosage: 100-300 MG
     Route: 048
  3. TRAZODONE [Concomitant]
     Route: 065
  4. WELLBUTRIN [Concomitant]
     Route: 065
  5. CYMBALTA [Concomitant]
     Route: 065
  6. LUNESTA [Concomitant]
     Route: 065
  7. OXYCODONE [Concomitant]
     Route: 048
  8. VERAPAMIL [Concomitant]
     Route: 048
  9. PREDNISONE [Concomitant]
     Route: 048
  10. KLONOPIN [Concomitant]
     Route: 048
  11. FLOVENT [Concomitant]
     Dosage: 220 MCG, 3 PUFFS TWICE DAILY
     Route: 065
  12. MYCELEX [Concomitant]
     Dosage: 5 PILLS DAILY
     Route: 065
  13. ALBUTEROL SULFATE [Concomitant]
     Dosage: 0.5 MG/ML, 6 TIMES/DAY
     Route: 065
  14. ATROVENT [Concomitant]
     Route: 065
  15. RESTORIL [Concomitant]
     Route: 065
  16. RANITIDINE [Concomitant]
     Route: 065
  17. THEOPHYLLINE [Concomitant]
     Route: 065
  18. GUAIFENESIN [Concomitant]
     Route: 065
  19. GEMFIBROZIL [Concomitant]
     Route: 065
  20. NEFAZODONE HCL [Concomitant]
     Route: 065
  21. LEVALBUTEROL HCL [Concomitant]
     Route: 065
  22. ENOXAPARIN SODIUM [Concomitant]
     Route: 065
  23. ALPRAZOLAM [Concomitant]
     Route: 065
  24. NICODERM [Concomitant]
     Route: 065
  25. SERZONE [Concomitant]
     Route: 065
  26. ASPIRIN [Concomitant]
     Route: 065
  27. SINGULAIR [Concomitant]
     Route: 065
  28. AEROBID SPRAY [Concomitant]
     Route: 065
  29. ZINACEF [Concomitant]
     Route: 065
  30. ZITHROMAX [Concomitant]
     Route: 065
  31. PROVENTIL-HFA [Concomitant]
     Route: 065
  32. LANTUS [Concomitant]
     Dosage: 100 U/ML
     Route: 065
  33. INSULIN [Concomitant]
     Dosage: 0.5/30 G
     Route: 065

REACTIONS (7)
  - DIABETES MELLITUS [None]
  - DISORIENTATION [None]
  - IRRITABILITY [None]
  - MENISCUS LESION [None]
  - OSTEOARTHRITIS [None]
  - PLICA SYNDROME [None]
  - POLYP [None]
